FAERS Safety Report 4730008-8 (Version None)
Quarter: 2005Q3

REPORT INFORMATION
  Report Type: 
  Country: None (occurrence: None)
  Receive Date: 20050728
  Receipt Date: 20050718
  Transmission Date: 20060218
  Serious: Yes (Life-Threatening, Hospitalization)
  Sender: FDA-Public Use
  Company Number: 2005S1000222

PATIENT
  Age: 65 Year
  Sex: Female

DRUGS (1)
  1. ACITRETIN (ACITRETIN) [Suspect]
     Dosage: 10 MG; TIW; PO
     Route: 048
     Dates: start: 19990210, end: 20050706

REACTIONS (2)
  - NEUTROPENIA [None]
  - SEPSIS [None]
